FAERS Safety Report 24282299 (Version 1)
Quarter: 2024Q3

REPORT INFORMATION
  Report Type: Spontaneous
  Country: US (occurrence: US)
  Receive Date: 20240904
  Receipt Date: 20240904
  Transmission Date: 20241016
  Serious: Yes (Death, Other)
  Sender: AMGEN
  Company Number: US-AMGEN-USASP2024173151

PATIENT
  Age: 59 Year
  Sex: Male

DRUGS (2)
  1. PREDNISONE [Suspect]
     Active Substance: PREDNISONE
     Indication: Sarcoidosis
     Dosage: UNK
     Route: 048
  2. RITUXIMAB [Suspect]
     Active Substance: RITUXIMAB
     Indication: Diffuse large B-cell lymphoma
     Dosage: UNK
     Route: 065

REACTIONS (6)
  - Central nervous system lymphoma [Fatal]
  - Rhegmatogenous retinal detachment [Recovered/Resolved]
  - Diffuse large B-cell lymphoma [Recovering/Resolving]
  - Vitritis [Unknown]
  - Ocular lymphoma [Unknown]
  - Iritis [Unknown]
